FAERS Safety Report 4408640-0 (Version None)
Quarter: 2004Q3

REPORT INFORMATION
  Report Type: 
  Country: None (occurrence: None)
  Receive Date: 20040723
  Receipt Date: 20040708
  Transmission Date: 20050211
  Serious: Yes (Death, Hospitalization)
  Sender: FDA-Public Use
  Company Number: 2004-0007243

PATIENT
  Age: 56 Year
  Sex: Female

DRUGS (5)
  1. ADEFOVIR DIPIVOXIL [Suspect]
     Indication: HEPATITIS B
     Dosage: MG, ORAL
     Route: 048
     Dates: start: 20030407, end: 20040207
  2. ZEFFIX (LAMIVUDINE) [Concomitant]
  3. TIENAM (TIENAM) [Concomitant]
  4. CARBENIN (GALENIC/PANIPENEM/BETAMIPRON/) [Concomitant]
  5. LEVOFLOXACIN [Concomitant]

REACTIONS (6)
  - BACK PAIN [None]
  - CONDITION AGGRAVATED [None]
  - HYPERBILIRUBINAEMIA [None]
  - PLEURAL EFFUSION [None]
  - PYREXIA [None]
  - RESPIRATORY FAILURE [None]
